FAERS Safety Report 4799910-5 (Version None)
Quarter: 2005Q4

REPORT INFORMATION
  Report Type: 
  Country: None (occurrence: None)
  Receive Date: 20051012
  Receipt Date: 20051012
  Transmission Date: 20060501
  Serious: Yes (Hospitalization, Other)
  Sender: FDA-Public Use
  Company Number: None

PATIENT
  Sex: Female
  Weight: 105 kg

DRUGS (2)
  1. PACLITAXEL [Suspect]
     Indication: BREAST CANCER
     Dosage: SEE IMAGE
     Dates: start: 20050411, end: 20050621
  2. PACLITAXEL [Suspect]
     Indication: BREAST CANCER
     Dosage: SEE IMAGE
     Dates: start: 20050621

REACTIONS (5)
  - AREFLEXIA [None]
  - ASTHENIA [None]
  - DEMYELINATING POLYNEUROPATHY [None]
  - NEUROGENIC BLADDER [None]
  - NEUROGENIC BOWEL [None]
